FAERS Safety Report 15731050 (Version 3)
Quarter: 2019Q1

REPORT INFORMATION
  Report Type: Report from Study
  Country: FR (occurrence: FR)
  Receive Date: 20181217
  Receipt Date: 20190128
  Transmission Date: 20190417
  Serious: Yes (Life-Threatening)
  Sender: FDA-Public Use
  Company Number: FR-PFIZER INC-2018515483

PATIENT
  Age: 74 Year
  Sex: Male
  Weight: 128 kg

DRUGS (23)
  1. IPRATROPIUM [Concomitant]
     Active Substance: IPRATROPIUM
     Indication: PNEUMONITIS
     Dosage: UNK
     Dates: start: 20181127, end: 20181211
  2. OXYCODONE [Concomitant]
     Active Substance: OXYCODONE
     Indication: PAIN
     Dosage: UNK
     Dates: start: 20181208, end: 20181211
  3. RACECADOTRIL [Concomitant]
     Active Substance: RACECADOTRIL
     Indication: DIARRHOEA
     Dosage: UNK
     Dates: start: 20181206, end: 20181211
  4. AZACITIDINE. [Suspect]
     Active Substance: AZACITIDINE
     Indication: ACUTE MYELOID LEUKAEMIA
     Dosage: 150 MG, CYCLIC (FOR 7 DAYS OVER 28 DAYS)
     Dates: start: 20181029, end: 20181106
  5. CEFTRIAXONE. [Concomitant]
     Active Substance: CEFTRIAXONE
     Indication: PNEUMONITIS
     Dosage: UNK
     Dates: start: 20181127, end: 20181129
  6. HYDROXYZINE [Concomitant]
     Active Substance: HYDROXYZINE HYDROCHLORIDE
     Indication: ANXIETY
     Dosage: UNK
     Dates: start: 20181130, end: 20181205
  7. SPIRAMYCINE [Concomitant]
     Active Substance: SPIRAMYCIN
     Indication: PNEUMONITIS
     Dosage: UNK
     Dates: start: 20181127, end: 20181206
  8. TINZAPARIN [Concomitant]
     Active Substance: TINZAPARIN
     Indication: THROMBOPHLEBITIS SUPERFICIAL
     Dosage: UNK
     Dates: start: 20181205, end: 20181210
  9. DIOSMECTITE [Concomitant]
     Active Substance: MONTMORILLONITE
     Indication: DIARRHOEA
     Dosage: UNK
     Dates: start: 20181206, end: 20181211
  10. NEFOPAM [Concomitant]
     Active Substance: NEFOPAM
     Indication: PAIN
     Dosage: UNK
     Dates: start: 20181208, end: 20181211
  11. ENOXAPARINE [Concomitant]
     Active Substance: ENOXAPARIN
     Dosage: UNK
     Dates: start: 20181126, end: 20181126
  12. TRAMADOL. [Concomitant]
     Active Substance: TRAMADOL
     Indication: PNEUMONITIS
     Dosage: UNK
     Dates: start: 20181128, end: 20181207
  13. PHYTOMENADIONE [Concomitant]
     Active Substance: PHYTONADIONE
     Dosage: UNK
     Dates: start: 20181208, end: 20181208
  14. FUROSEMIDE. [Concomitant]
     Active Substance: FUROSEMIDE
     Indication: OEDEMA
     Dosage: UNK
     Dates: start: 20181129, end: 20181130
  15. GLASDEGIB [Suspect]
     Active Substance: GLASDEGIB
     Indication: ACUTE MYELOID LEUKAEMIA
     Dosage: 100 MG, 1X/DAY
     Route: 048
     Dates: start: 20181029, end: 20181126
  16. PERMIXON [Concomitant]
     Active Substance: HERBALS\SAW PALMETTO
     Indication: BENIGN PROSTATIC HYPERPLASIA
     Dosage: UNK
  17. ENOXAPARINE [Concomitant]
     Active Substance: ENOXAPARIN
     Dosage: UNK
     Dates: start: 20181202, end: 20181204
  18. FUROSEMIDE. [Concomitant]
     Active Substance: FUROSEMIDE
     Dosage: UNK
     Dates: start: 20181209, end: 20181210
  19. PHYTOMENADIONE [Concomitant]
     Active Substance: PHYTONADIONE
     Indication: VITAMIN SUPPLEMENTATION
     Dosage: UNK
     Dates: start: 20181130, end: 20181130
  20. PARACETAMOL [Concomitant]
     Active Substance: ACETAMINOPHEN
     Indication: PNEUMONITIS
     Dosage: UNK
     Dates: start: 20181127, end: 20181127
  21. SALBUTAMOL [Concomitant]
     Active Substance: ALBUTEROL
     Indication: PNEUMONITIS
     Dosage: UNK
     Dates: start: 20181127, end: 20181211
  22. METOCLOPRAMIDE. [Concomitant]
     Active Substance: METOCLOPRAMIDE
     Indication: NAUSEA
     Dosage: UNK
     Dates: start: 20181125, end: 20181126
  23. PIPERACILLIN AND TAZOBACTAM [Concomitant]
     Active Substance: PIPERACILLIN SODIUM\TAZOBACTAM SODIUM
     Indication: PNEUMONITIS
     Dosage: UNK
     Dates: start: 20181130, end: 20181209

REACTIONS (1)
  - Right ventricular failure [Not Recovered/Not Resolved]

NARRATIVE: CASE EVENT DATE: 20181211
